FAERS Safety Report 12327445 (Version 1)
Quarter: 2016Q2

REPORT INFORMATION
  Report Type: Spontaneous
  Country: IT (occurrence: IT)
  Receive Date: 20160503
  Receipt Date: 20160503
  Transmission Date: 20160815
  Serious: Yes (Hospitalization)
  Sender: FDA-Public Use
  Company Number: IT-GLAXOSMITHKLINE-IT2016GSK060451

PATIENT
  Age: 31 Year
  Sex: Male

DRUGS (7)
  1. DINTOINA [Concomitant]
     Active Substance: PHENYTOIN SODIUM
     Route: 048
  2. TRIATEC [Concomitant]
     Active Substance: RAMIPRIL
     Route: 048
  3. LANSOX [Concomitant]
     Active Substance: LANSOPRAZOLE
     Route: 048
  4. ACYCLOVIR. [Suspect]
     Active Substance: ACYCLOVIR
     Indication: MENINGOENCEPHALITIS HERPETIC
     Dosage: 750 MG, QD
     Route: 042
     Dates: start: 20151026, end: 20151030
  5. CEFTRIAXONE. [Concomitant]
     Active Substance: CEFTRIAXONE
     Dosage: 2 G, UNK
     Route: 042
  6. AURANTIN [Concomitant]
     Active Substance: PHENYTOIN SODIUM
     Dosage: 50 MG, UNK
     Route: 042
  7. CLEXANE [Concomitant]
     Active Substance: ENOXAPARIN SODIUM
     Route: 058

REACTIONS (2)
  - Pruritus [Recovered/Resolved]
  - Dermatitis allergic [Recovered/Resolved]

NARRATIVE: CASE EVENT DATE: 20151030
